FAERS Safety Report 11979791 (Version 3)
Quarter: 2016Q3

REPORT INFORMATION
  Report Type: Spontaneous
  Country: FR (occurrence: FR)
  Receive Date: 20160129
  Receipt Date: 20160906
  Transmission Date: 20161109
  Serious: Yes (Hospitalization)
  Sender: FDA-Public Use
  Company Number: FR-SA-2016SA013395

PATIENT
  Age: 83 Year
  Sex: Male

DRUGS (9)
  1. PERMIXON [Concomitant]
     Active Substance: SAW PALMETTO
  2. VOLTARENE [Concomitant]
     Active Substance: DICLOFENAC SODIUM
  3. TEMESTA [Concomitant]
     Active Substance: LORAZEPAM
  4. DOLIPRANE [Concomitant]
     Active Substance: ACETAMINOPHEN
  5. LYRICA [Concomitant]
     Active Substance: PREGABALIN
  6. PLAVIX [Suspect]
     Active Substance: CLOPIDOGREL BISULFATE
     Route: 048
  7. ALFUZOSIN [Concomitant]
     Active Substance: ALFUZOSIN
  8. XARELTO [Suspect]
     Active Substance: RIVAROXABAN
     Route: 048
  9. DIAMICRON [Concomitant]
     Active Substance: GLICLAZIDE

REACTIONS (2)
  - Venous thrombosis [Recovered/Resolved with Sequelae]
  - Ischaemia [Recovered/Resolved with Sequelae]

NARRATIVE: CASE EVENT DATE: 20151225
